FAERS Safety Report 5062315-6 (Version None)
Quarter: 2006Q3

REPORT INFORMATION
  Report Type: 
  Country: None (occurrence: None)
  Receive Date: 20060703
  Receipt Date: 20051208
  Transmission Date: 20061208
  Serious: No
  Sender: FDA-Public Use
  Company Number: 2005S1011840

PATIENT
  Age: 47 Year
  Sex: Male

DRUGS (8)
  1. CLOZAPINE [Suspect]
     Indication: SCHIZOPHRENIA
     Dosage: 200 MG;BID;ORAL
     Route: 047
     Dates: start: 20020605
  2. TOCOPHEROL CONCENTRATE CAP [Concomitant]
  3. BENZTROPINE MESYLATE [Concomitant]
  4. ZALEPLON [Concomitant]
  5. VALPROATE SODIUM [Concomitant]
  6. VITAMINS NOS [Concomitant]
  7. DOCUSATE SODIUM [Concomitant]
  8. RANITIDINE [Concomitant]

REACTIONS (1)
  - GRANULOCYTOPENIA [None]
